FAERS Safety Report 11788734 (Version 1)
Quarter: 2015Q4

REPORT INFORMATION
  Report Type: Spontaneous
  Country: None (occurrence: None)
  Receive Date: 20151130
  Receipt Date: 20151130
  Transmission Date: 20160305
  Serious: Yes (Hospitalization, Disabling, Other)
  Sender: FDA-Public Use
  Company Number: None

PATIENT
  Age: 22 Year
  Sex: Female
  Weight: 65 kg

DRUGS (4)
  1. CLONAZEPAN [Concomitant]
     Active Substance: CLONAZEPAM
  2. RISPERIDONA [Concomitant]
     Active Substance: RISPERIDONE
  3. KEPPRA [Suspect]
     Active Substance: LEVETIRACETAM
     Indication: EPILEPSY
     Route: 048
     Dates: start: 20100210, end: 20151026
  4. FOXETINA [Concomitant]

REACTIONS (2)
  - Eating disorder [None]
  - Suicide attempt [None]

NARRATIVE: CASE EVENT DATE: 20151019
